FAERS Safety Report 14911834 (Version 11)
Quarter: 2019Q1

REPORT INFORMATION
  Report Type: Spontaneous
  Country: US (occurrence: US)
  Receive Date: 20180518
  Receipt Date: 20190227
  Transmission Date: 20190417
  Serious: Yes (Other)
  Sender: FDA-Public Use
  Company Number: US-BRISTOL-MYERS SQUIBB COMPANY-BMS-2018-045326

PATIENT
  Sex: Female

DRUGS (1)
  1. ORENCIA [Suspect]
     Active Substance: ABATACEPT
     Indication: RHEUMATOID ARTHRITIS
     Dosage: 125 MG, QWK
     Route: 058
     Dates: start: 201804

REACTIONS (10)
  - Abscess [Unknown]
  - Blood pressure increased [Unknown]
  - Wound [Unknown]
  - Infection [Unknown]
  - Injection site extravasation [Unknown]
  - Malaise [Unknown]
  - Diarrhoea [Unknown]
  - Diverticulitis [Unknown]
  - Bronchitis [Unknown]
  - Post procedural complication [Unknown]
